FAERS Safety Report 9832865 (Version 3)
Quarter: 2014Q2

REPORT INFORMATION
  Report Type: Spontaneous
  Country: US (occurrence: US)
  Receive Date: 20140121
  Receipt Date: 20140610
  Transmission Date: 20141212
  Serious: Yes (Other)
  Sender: FDA-Public Use
  Company Number: US-JNJFOC-20140107069

PATIENT
  Age: 70 Year
  Sex: Female
  Weight: 97.52 kg

DRUGS (25)
  1. XARELTO [Suspect]
     Indication: PULMONARY EMBOLISM
     Dosage: 3 WEEKS
     Route: 048
     Dates: start: 201303
  2. XARELTO [Suspect]
     Indication: PULMONARY EMBOLISM
     Route: 048
     Dates: end: 20131227
  3. XARELTO [Suspect]
     Indication: PULMONARY EMBOLISM
     Route: 048
  4. NABUMETONE [Suspect]
     Indication: ARTHRITIS
     Route: 065
  5. LABETALOL [Concomitant]
     Indication: HYPERTENSION
     Route: 048
  6. CYMBALTA [Concomitant]
     Indication: SLEEP DISORDER THERAPY
     Route: 048
     Dates: start: 201311
  7. CYMBALTA [Concomitant]
     Indication: PAIN
     Route: 048
     Dates: start: 201311
  8. CYMBALTA [Concomitant]
     Indication: FIBROMYALGIA
     Route: 048
     Dates: start: 201311
  9. CYMBALTA [Concomitant]
     Indication: DEPRESSION
     Route: 048
     Dates: start: 201311
  10. SIMVASTATIN [Concomitant]
     Indication: BLOOD CHOLESTEROL INCREASED
     Route: 048
     Dates: start: 201311
  11. FUROSEMIDE [Concomitant]
     Indication: FLUID RETENTION
     Route: 048
     Dates: start: 201311
  12. POTASSIUM CHLORIDE [Concomitant]
     Indication: FLUID RETENTION
     Route: 048
  13. CALCIUM CITRATE [Concomitant]
     Indication: OSTEOARTHRITIS
     Dosage: 3 TABLETS PER DOSE WITH 600 IU VITAMIN D
     Route: 048
  14. CALCIUM CITRATE [Concomitant]
     Indication: RHEUMATOID ARTHRITIS
     Dosage: 3 TABLETS PER DOSE WITH 600 IU VITAMIN D
     Route: 048
  15. VITAMIN D3 [Concomitant]
     Indication: OSTEOARTHRITIS
     Route: 048
  16. VITAMIN D3 [Concomitant]
     Indication: RHEUMATOID ARTHRITIS
     Route: 048
  17. ALLOPURINOL [Concomitant]
     Indication: GOUT
     Route: 048
  18. LEFLUNOMIDE [Concomitant]
     Indication: RHEUMATOID ARTHRITIS
     Route: 048
  19. PREDNISONE [Concomitant]
     Indication: PRODUCT USED FOR UNKNOWN INDICATION
     Route: 048
  20. HYDROCODONE-ACETAMINOPHEN [Concomitant]
     Indication: PAIN
     Dosage: 7.5/325 2 TABLETS EVERY 5-6 HOURS AS NECESSARY
     Route: 048
  21. RESTASIS [Concomitant]
     Indication: LACRIMATION INCREASED
     Dosage: 7.5/325 2 TABLETS EVERY 5-6 HOURS
     Route: 047
  22. LIPOFLAVONOID [Concomitant]
     Dosage: 7.5/325 2 TABLETS EVERY 5-6 HOURS
     Route: 048
  23. DICLOFENAC SODIUM [Concomitant]
     Dosage: 7.5/325 2 TABLETS EVERY 5-6 HOURS
     Route: 061
  24. PROBIOTIC [Concomitant]
     Dosage: 7.5/325 2 TABLETS EVERY 5-6 HOURS
     Route: 048
  25. SYSTANE [Concomitant]
     Dosage: 0.4-0.3%
     Route: 065

REACTIONS (4)
  - Wound haemorrhage [Recovered/Resolved]
  - Laceration [Recovered/Resolved]
  - Contusion [Not Recovered/Not Resolved]
  - Rash generalised [Unknown]
